FAERS Safety Report 4644261-2 (Version None)
Quarter: 2005Q2

REPORT INFORMATION
  Report Type: 
  Country: None (occurrence: None)
  Receive Date: 20050422
  Receipt Date: 20050228
  Transmission Date: 20051028
  Serious: Yes (Hospitalization, Other)
  Sender: FDA-Public Use
  Company Number: ATO-05-0059

PATIENT
  Age: 83 Year
  Sex: Female

DRUGS (2)
  1. TRISENOX [Suspect]
     Indication: ACUTE PROMYELOCYTIC LEUKAEMIA
     Dosage: 0.15 MG/KG, QD
     Dates: start: 20050111, end: 20050128
  2. MEXILETINE HCL [Concomitant]

REACTIONS (3)
  - ANAEMIA [None]
  - PANCYTOPENIA [None]
  - VENTRICULAR EXTRASYSTOLES [None]
